FAERS Safety Report 7004573-4 (Version None)
Quarter: 2010Q3

REPORT INFORMATION
  Report Type: 
  Country: None (occurrence: None)
  Receive Date: 20100921
  Receipt Date: 20100909
  Transmission Date: 20110219
  Serious: Yes (Other)
  Sender: FDA-Public Use
  Company Number: US-JNJFOC-20100903582

PATIENT
  Sex: Female

DRUGS (3)
  1. REMICADE [Suspect]
     Indication: RHEUMATOID ARTHRITIS
     Route: 042
  2. REMICADE [Suspect]
     Route: 042
  3. REMICADE [Suspect]
     Route: 042

REACTIONS (8)
  - CHILLS [None]
  - DIARRHOEA [None]
  - HYPERHIDROSIS [None]
  - LETHARGY [None]
  - MALAISE [None]
  - MOVEMENT DISORDER [None]
  - PYREXIA [None]
  - SUICIDAL IDEATION [None]
